FAERS Safety Report 25933012 (Version 2)
Quarter: 2025Q4

REPORT INFORMATION
  Report Type: Spontaneous
  Country: US (occurrence: US)
  Receive Date: 20251017
  Receipt Date: 20251029
  Transmission Date: 20260118
  Serious: No
  Sender: REGENERON
  Company Number: US-REGENERON PHARMACEUTICALS, INC.-2025-163523

PATIENT
  Sex: Male

DRUGS (1)
  1. PRALUENT [Suspect]
     Active Substance: ALIROCUMAB
     Indication: Low density lipoprotein increased
     Dosage: 75 MG, Q2W (EVERY OTHER WEEK), STRENGTH: 75 MG/ML
     Route: 058
     Dates: start: 2024

REACTIONS (1)
  - Injection site erythema [Unknown]
